FAERS Safety Report 10948102 (Version 1)
Quarter: 2015Q1

REPORT INFORMATION
  Report Type: Spontaneous
  Country: US (occurrence: None)
  Receive Date: 20150225
  Receipt Date: 20150225
  Transmission Date: 20150721
  Serious: Yes (Hospitalization)
  Sender: FDA-Public Use
  Company Number: 2014-US-003330

PATIENT
  Age: 62 Year
  Sex: Female

DRUGS (6)
  1. CLONIDINE (CLONIDINE) INJECTION [Suspect]
     Active Substance: CLONIDINE
     Indication: PAIN
     Route: 037
     Dates: end: 20140313
  2. BUPIVACAINE HYDROCHLORIDE. [Suspect]
     Active Substance: BUPIVACAINE HYDROCHLORIDE
     Indication: BACK PAIN
     Route: 037
     Dates: end: 20140313
  3. CLONIDINE (CLONIDINE) INJECTION [Suspect]
     Active Substance: CLONIDINE
     Indication: BACK PAIN
     Route: 037
     Dates: end: 20140313
  4. PRIALT [Suspect]
     Active Substance: ZICONOTIDE ACETATE
     Indication: PAIN
     Route: 037
     Dates: end: 20140313
  5. PRIALT [Suspect]
     Active Substance: ZICONOTIDE ACETATE
     Indication: BACK PAIN
     Route: 037
     Dates: end: 20140313
  6. BUPIVACAINE HYDROCHLORIDE. [Suspect]
     Active Substance: BUPIVACAINE HYDROCHLORIDE
     Indication: PAIN
     Route: 037
     Dates: end: 20140313

REACTIONS (4)
  - Speech disorder [None]
  - Hallucination, auditory [None]
  - Dysarthria [None]
  - Hallucination, visual [None]

NARRATIVE: CASE EVENT DATE: 20140310
